FAERS Safety Report 20609058 (Version 1)
Quarter: 2022Q1

REPORT INFORMATION
  Report Type: Spontaneous
  Country: US (occurrence: US)
  Receive Date: 20220317
  Receipt Date: 20220317
  Transmission Date: 20220423
  Serious: No
  Sender: FDA-Public Use
  Company Number: US-SMITH AND NEPHEW, INC-2021SMT00012

PATIENT
  Age: 74 Year
  Sex: Female
  Weight: 77.098 kg

DRUGS (2)
  1. COLLAGENASE SANTYL [Suspect]
     Active Substance: COLLAGENASE CLOSTRIDIUM HISTOLYTICUM
     Indication: Skin lesion
     Dosage: ^SOME^, 1X/DAY APPLIED WITH A STERILE Q-TIP AFTER CLEANSING THE TIP OF THE TOE
     Dates: start: 20210216, end: 20210225
  2. METFORMIN [Concomitant]
     Active Substance: METFORMIN HYDROCHLORIDE
     Dosage: 500 MG, 1X/DAY

REACTIONS (3)
  - Application site exfoliation [Not Recovered/Not Resolved]
  - Off label use [Recovered/Resolved]
  - Erythema [Not Recovered/Not Resolved]

NARRATIVE: CASE EVENT DATE: 20210201
